FAERS Safety Report 19522181 (Version 2)
Quarter: 2021Q3

REPORT INFORMATION
  Report Type: Report from Study
  Country: US (occurrence: US)
  Receive Date: 20210712
  Receipt Date: 20210714
  Transmission Date: 20211014
  Serious: No
  Sender: FDA-Public Use
  Company Number: NVSC2021US150363

PATIENT
  Age: 58 Year
  Sex: Female

DRUGS (1)
  1. JADENU [Suspect]
     Active Substance: DEFERASIROX
     Indication: IRON DEFICIENCY ANAEMIA
     Dosage: 720 MG, QD
     Route: 048
     Dates: start: 20180207, end: 20210610

REACTIONS (3)
  - Change of bowel habit [Unknown]
  - Infrequent bowel movements [Unknown]
  - Decreased appetite [Unknown]

NARRATIVE: CASE EVENT DATE: 20180207
